FAERS Safety Report 7569343-7 (Version None)
Quarter: 2011Q2

REPORT INFORMATION
  Report Type: 
  Country: None (occurrence: None)
  Receive Date: 20110623
  Receipt Date: 20110620
  Transmission Date: 20111010
  Serious: Yes (Other)
  Sender: FDA-Public Use
  Company Number: US-CEPHALON-2011003171

PATIENT
  Age: 75 Year
  Sex: Female

DRUGS (3)
  1. NEULASTA [Concomitant]
  2. RITUXAN [Concomitant]
  3. TREANDA [Suspect]
     Indication: DIFFUSE LARGE B-CELL LYMPHOMA
     Route: 042

REACTIONS (3)
  - NEUTROPENIA [None]
  - PANCYTOPENIA [None]
  - FATIGUE [None]
